FAERS Safety Report 7320489-8 (Version None)
Quarter: 2011Q1

REPORT INFORMATION
  Report Type: 
  Country: None (occurrence: None)
  Receive Date: 20110228
  Receipt Date: 20110218
  Transmission Date: 20110831
  Serious: Yes (Hospitalization)
  Sender: FDA-Public Use
  Company Number: B0702546A

PATIENT
  Sex: Male
  Weight: 78 kg

DRUGS (3)
  1. MELPHALAN [Suspect]
     Indication: MULTIPLE MYELOMA
     Dosage: 14MG PER DAY
     Route: 048
     Dates: start: 20071220
  2. PREDNISONE [Suspect]
     Indication: MULTIPLE MYELOMA
     Dosage: 156MG PER DAY
     Route: 048
     Dates: start: 20071220
  3. PLACEBO [Suspect]
     Indication: MULTIPLE MYELOMA
     Dosage: 10MG PER DAY
     Route: 048
     Dates: start: 20071220

REACTIONS (1)
  - PNEUMONIA [None]
